FAERS Safety Report 25214605 (Version 1)
Quarter: 2025Q2

REPORT INFORMATION
  Report Type: Other
  Country: CN (occurrence: CN)
  Receive Date: 20250418
  Receipt Date: 20250418
  Transmission Date: 20250716
  Serious: Yes (Hospitalization, Other)
  Sender: ALVOGEN
  Company Number: CN-ALVOGEN-2025097762

PATIENT
  Age: 31 Year
  Sex: Female

DRUGS (11)
  1. DEXAMETHASONE [Suspect]
     Active Substance: DEXAMETHASONE
     Indication: Nucleated red cells
     Route: 048
     Dates: start: 202306
  2. CYCLOSPORINE [Suspect]
     Active Substance: CYCLOSPORINE
     Indication: Thrombocytopenia
     Route: 048
     Dates: start: 202307
  3. RAFUTROMBOPAG [Suspect]
     Active Substance: RAFUTROMBOPAG
     Indication: Thrombocytopenia
     Route: 048
     Dates: start: 202307
  4. METHYLPREDNISOLONE [Concomitant]
     Active Substance: METHYLPREDNISOLONE
     Indication: Connective tissue disorder
     Dates: start: 202306
  5. METHYLPREDNISOLONE [Concomitant]
     Active Substance: METHYLPREDNISOLONE
     Indication: Connective tissue disorder
     Dates: start: 202307
  6. METHYLPREDNISOLONE [Concomitant]
     Active Substance: METHYLPREDNISOLONE
     Indication: Connective tissue disorder
     Dates: start: 202307
  7. HYDROXYCHLOROQUINE [Concomitant]
     Active Substance: HYDROXYCHLOROQUINE
     Indication: Connective tissue disorder
     Dates: start: 202306
  8. RECOMBINANT HUMAN THROMBOPOIETIN [Concomitant]
     Active Substance: RECOMBINANT HUMAN THROMBOPOIETIN
     Indication: Nucleated red cells
     Route: 058
     Dates: start: 202306
  9. HUMAN IMMUNOGLOBULIN G [Concomitant]
     Active Substance: HUMAN IMMUNOGLOBULIN G
     Indication: Nucleated red cells
     Route: 042
     Dates: start: 202306
  10. HUMAN IMMUNOGLOBULIN G [Concomitant]
     Active Substance: HUMAN IMMUNOGLOBULIN G
     Indication: Nucleated red cells
     Route: 042
     Dates: start: 202307
  11. OPRELVEKIN [Concomitant]
     Active Substance: OPRELVEKIN
     Indication: Connective tissue disorder
     Dates: start: 202307

REACTIONS (1)
  - Drug-induced liver injury [Unknown]

NARRATIVE: CASE EVENT DATE: 20230601
